FAERS Safety Report 6546477-7 (Version None)
Quarter: 2010Q1

REPORT INFORMATION
  Report Type: 
  Country: None (occurrence: None)
  Receive Date: 20100122
  Receipt Date: 20100119
  Transmission Date: 20100710
  Serious: Yes (Other)
  Sender: FDA-Public Use
  Company Number: CHPA2010US00507

PATIENT
  Age: 62 Year
  Sex: Female

DRUGS (1)
  1. VOLTAREN [Suspect]
     Indication: INFLAMMATION
     Dosage: 2 G, BID
     Route: 061

REACTIONS (4)
  - OFF LABEL USE [None]
  - PAIN [None]
  - SURGERY [None]
  - TENDON INJURY [None]
